FAERS Safety Report 26091389 (Version 2)
Quarter: 2025Q4

REPORT INFORMATION
  Report Type: Report from Study
  Country: US (occurrence: US)
  Receive Date: 20251126
  Receipt Date: 20251211
  Transmission Date: 20260117
  Serious: Yes (Death)
  Sender: ROCHE
  Company Number: US-ROCHE-10000443081

PATIENT
  Age: 66 Year
  Sex: Female

DRUGS (2)
  1. HERCEPTIN [Suspect]
     Active Substance: TRASTUZUMAB
     Indication: Endometrial cancer metastatic
     Dosage: INFUSE 560MG INTRAVENOUSLY DAY 1 FOR LOADING DOSE
     Route: 042
  2. PERJETA [Suspect]
     Active Substance: PERTUZUMAB
     Indication: Endometrial cancer metastatic
     Dosage: INFUSE 840MG INTRAVENOUSLY FIRST CYCLE ONLY FOR LOADING DOSE
     Route: 042

REACTIONS (2)
  - Death [Fatal]
  - Off label use [Unknown]
